FAERS Safety Report 14713782 (Version 2)
Quarter: 2018Q2

REPORT INFORMATION
  Report Type: Report from Study
  Country: US (occurrence: US)
  Receive Date: 20180404
  Receipt Date: 20180406
  Transmission Date: 20180711
  Serious: Yes (Hospitalization, Other)
  Sender: FDA-Public Use
  Company Number: US-GILEAD-2018-0329968

PATIENT
  Age: 64 Year
  Sex: Male

DRUGS (5)
  1. AMBRISENTAN [Suspect]
     Active Substance: AMBRISENTAN
     Indication: PRODUCT USED FOR UNKNOWN INDICATION
     Dosage: 10 MG, QD
     Route: 065
     Dates: start: 20130118
  2. WARFARIN [Concomitant]
     Active Substance: WARFARIN
  3. REVATIO [Concomitant]
     Active Substance: SILDENAFIL CITRATE
  4. OXYGEN. [Concomitant]
     Active Substance: OXYGEN
  5. AMLODIPINE [Concomitant]
     Active Substance: AMLODIPINE BESYLATE

REACTIONS (7)
  - Head injury [Unknown]
  - Loss of consciousness [Unknown]
  - Fluid intake reduced [Unknown]
  - Syncope [Unknown]
  - Asthenia [Not Recovered/Not Resolved]
  - Hypophagia [Unknown]
  - Fall [Unknown]

NARRATIVE: CASE EVENT DATE: 20180316
